FAERS Safety Report 18507090 (Version 7)
Quarter: 2022Q1

REPORT INFORMATION
  Report Type: Spontaneous
  Country: JP (occurrence: JP)
  Receive Date: 20201116
  Receipt Date: 20220203
  Transmission Date: 20220423
  Serious: Yes (Death, Life-Threatening, Hospitalization, Disabling, Other)
  Sender: FDA-Public Use
  Company Number: JP-ASTELLAS-2020JP017333

PATIENT
  Age: 78 Year
  Sex: Male

DRUGS (12)
  1. XTANDI [Suspect]
     Active Substance: ENZALUTAMIDE
     Indication: Prostate cancer
     Route: 048
     Dates: start: 20200827, end: 20200922
  2. ERLEADA [Suspect]
     Active Substance: APALUTAMIDE
     Indication: Prostate cancer
     Route: 048
     Dates: start: 20200228, end: 20200813
  3. ALLOPURINOL [Concomitant]
     Active Substance: ALLOPURINOL
     Indication: Hyperuricaemia
     Route: 048
     Dates: end: 20200922
  4. SARPOGRELATE [Concomitant]
     Active Substance: SARPOGRELATE
     Indication: Peripheral arterial occlusive disease
     Route: 048
  5. RABEPRAZOLE SODIUM [Concomitant]
     Active Substance: RABEPRAZOLE SODIUM
     Indication: Gastrooesophageal reflux disease
     Route: 048
  6. MIRABEGRON [Concomitant]
     Active Substance: MIRABEGRON
     Indication: Hypertonic bladder
     Route: 048
  7. URSODIOL [Concomitant]
     Active Substance: URSODIOL
     Indication: Hepatic function abnormal
     Route: 048
  8. PREDNISOLONE [Concomitant]
     Active Substance: PREDNISOLONE
     Indication: Dermatitis exfoliative generalised
     Route: 048
     Dates: start: 20200924
  9. PREDNISOLONE [Concomitant]
     Active Substance: PREDNISOLONE
     Route: 048
     Dates: start: 20201002
  10. PREDNISOLONE [Concomitant]
     Active Substance: PREDNISOLONE
     Route: 048
     Dates: start: 20201014
  11. PREDNISOLONE [Concomitant]
     Active Substance: PREDNISOLONE
     Dosage: TAPERED, UNKNOWN FREQ.
     Route: 065
  12. PREDNISOLONE [Concomitant]
     Active Substance: PREDNISOLONE
     Route: 065

REACTIONS (6)
  - Interstitial lung disease [Fatal]
  - Dermatitis exfoliative generalised [Fatal]
  - Erythema [Recovered/Resolved]
  - Pneumonia cytomegaloviral [Recovered/Resolved]
  - Inappropriate schedule of product administration [Unknown]
  - Prescribed underdose [Unknown]

NARRATIVE: CASE EVENT DATE: 20200827
